FAERS Safety Report 8434676-9 (Version None)
Quarter: 2012Q2

REPORT INFORMATION
  Report Type: 
  Country: None (occurrence: None)
  Receive Date: 20120323
  Receipt Date: 20110809
  Transmission Date: 20120825
  Serious: Yes (Hospitalization)
  Sender: FDA-Public Use
  Company Number: 163-21880-11070163

PATIENT
  Age: 72 Year
  Sex: Male

DRUGS (3)
  1. ASPIRIN [Concomitant]
  2. REVLIMID [Suspect]
     Indication: MYELODYSPLASTIC SYNDROME
     Dosage: 10 MG, 1 IN 1 D, PO  , 5 MG, 1 IN 2 D, PO,  TEMPORARILY INTERRUPTED
     Route: 048
     Dates: start: 20101217
  3. REVLIMID [Suspect]
     Indication: MYELODYSPLASTIC SYNDROME
     Dosage: 10 MG, 1 IN 1 D, PO  , 5 MG, 1 IN 2 D, PO,  TEMPORARILY INTERRUPTED
     Route: 048
     Dates: start: 20110306

REACTIONS (2)
  - PNEUMONIA [None]
  - PLATELET COUNT DECREASED [None]
